FAERS Safety Report 14991303 (Version 1)
Quarter: 2018Q2

REPORT INFORMATION
  Report Type: Spontaneous
  Country: US (occurrence: US)
  Receive Date: 20180517
  Receipt Date: 20180517
  Transmission Date: 20180711
  Serious: Yes (Hospitalization)
  Sender: FDA-Public Use
  Company Number: None

PATIENT
  Sex: Female
  Weight: 103.9 kg

DRUGS (4)
  1. 5-FLUOROURACIL (5-FU) [Suspect]
     Active Substance: FLUOROURACIL
     Dates: start: 20180512
  2. OXALIPLATIN. [Suspect]
     Active Substance: OXALIPLATIN
     Dates: start: 20180510
  3. CAMPTOSAR [Suspect]
     Active Substance: IRINOTECAN HYDROCHLORIDE
     Dates: start: 20180510
  4. LEUCOVORIN CALCIUM. [Suspect]
     Active Substance: LEUCOVORIN CALCIUM
     Dates: start: 20180510

REACTIONS (3)
  - Diarrhoea [None]
  - Haemoglobin decreased [None]
  - Rectal haemorrhage [None]

NARRATIVE: CASE EVENT DATE: 20180511
